FAERS Safety Report 9955027 (Version 2)
Quarter: 2014Q1

REPORT INFORMATION
  Report Type: Report from Study
  Country: US (occurrence: US)
  Receive Date: 20140304
  Receipt Date: 20140304
  Transmission Date: 20141002
  Serious: No
  Sender: FDA-Public Use
  Company Number: US-ABBVIE-13P-163-1059619-00

PATIENT
  Age: 46 Year
  Sex: Female

DRUGS (18)
  1. HUMIRA [Suspect]
     Indication: RHEUMATOID ARTHRITIS
     Dates: start: 20130216, end: 20130216
  2. HUMIRA [Suspect]
  3. OPANA ER [Concomitant]
     Indication: RHEUMATOID ARTHRITIS
     Route: 048
  4. OPANA ER [Concomitant]
     Indication: ARTHRALGIA
  5. OXYMORPHONE [Concomitant]
     Indication: ARTHRALGIA
     Dosage: AS NEEDED
  6. METHOTREXATE [Concomitant]
     Indication: RHEUMATOID ARTHRITIS
     Route: 048
  7. ESCITALOPRAM [Concomitant]
     Indication: BIPOLAR DISORDER
     Route: 048
  8. LYRICA [Concomitant]
     Indication: FIBROMYALGIA
     Route: 048
  9. LEVOTHYROXINE [Concomitant]
     Indication: THYROID DISORDER
  10. QUETIAPINE [Concomitant]
     Indication: BIPOLAR DISORDER
     Dosage: 400MG DAILY
     Route: 048
  11. QUETIAPINE [Concomitant]
     Indication: DEPRESSION
  12. FOLIC ACID [Concomitant]
     Indication: RHEUMATOID ARTHRITIS
     Route: 048
  13. LORAZEPAM [Concomitant]
     Indication: ANXIETY
     Dosage: AS NEEDED
     Route: 048
  14. FLEXERIL [Concomitant]
     Indication: ARTHRALGIA
     Dosage: AT BEDTIME
     Route: 048
  15. ADVAIR [Concomitant]
     Indication: ASTHMA
     Dosage: 1 IN AM, 1 IN PM ; 250/50
  16. ALBUTEROL [Concomitant]
     Indication: ASTHMA
  17. PROVENTIL [Concomitant]
     Indication: ASTHMA
  18. LORATADINE [Concomitant]
     Indication: HYPERSENSITIVITY
     Dosage: 1 IN AM, 1 IN PM

REACTIONS (2)
  - Bronchitis [Recovered/Resolved]
  - Urinary tract infection [Recovered/Resolved]
